FAERS Safety Report 5157147-4 (Version None)
Quarter: 2006Q4

REPORT INFORMATION
  Report Type: 
  Country: None (occurrence: None)
  Receive Date: 20061115
  Receipt Date: 20061108
  Transmission Date: 20070319
  Serious: Yes (Other)
  Sender: FDA-Public Use
  Company Number: 2006AL003456

PATIENT
  Age: 82 Year
  Sex: Male

DRUGS (5)
  1. DILTIAZEM HYDROCHLORIDE [Suspect]
     Indication: HYPERTENSION
     Dosage: 300 MG; QD; PO
     Route: 048
     Dates: start: 20061015
  2. PROPRANOLOL [Concomitant]
  3. VASOTEC [Concomitant]
  4. CRESTOR [Concomitant]
  5. ASPIRIN [Concomitant]

REACTIONS (4)
  - DRUG INEFFECTIVE [None]
  - FEELING ABNORMAL [None]
  - HEART RATE DECREASED [None]
  - HYPOTENSION [None]
